FAERS Safety Report 18544616 (Version 1)
Quarter: 2020Q4

REPORT INFORMATION
  Report Type: Spontaneous
  Country: None (occurrence: IL)
  Receive Date: 20201125
  Receipt Date: 20201125
  Transmission Date: 20210114
  Serious: Yes (Other)
  Sender: FDA-Public Use
  Company Number: IL-KNIGHT THERAPEUTICS (USA) INC.-2096292

PATIENT
  Age: 32 Year
  Sex: Male
  Weight: 70 kg

DRUGS (1)
  1. IMPAVIDO [Suspect]
     Active Substance: MILTEFOSINE
     Indication: MUCOCUTANEOUS LEISHMANIASIS
     Dates: start: 2020, end: 2020

REACTIONS (4)
  - Off label use [Recovering/Resolving]
  - Arthritis [Recovering/Resolving]
  - Pain [Recovering/Resolving]
  - Therapy cessation [Unknown]
